FAERS Safety Report 8485295-X (Version None)
Quarter: 2012Q3

REPORT INFORMATION
  Report Type: 
  Country: None (occurrence: None)
  Receive Date: 20120703
  Receipt Date: 20120625
  Transmission Date: 20120928
  Serious: Yes (Life-Threatening, Hospitalization, Disabling, Other)
  Sender: FDA-Public Use
  Company Number: US-JNJFOC-20120612662

PATIENT
  Sex: Male

DRUGS (2)
  1. STELARA [Suspect]
     Indication: PSORIASIS
     Route: 058
     Dates: start: 20060101, end: 20071001
  2. STELARA [Suspect]
     Indication: PSORIATIC ARTHROPATHY
     Route: 058
     Dates: start: 20060101, end: 20071001

REACTIONS (13)
  - PSORIATIC ARTHROPATHY [None]
  - DEHYDRATION [None]
  - IMMUNE SYSTEM DISORDER [None]
  - PUSTULAR PSORIASIS [None]
  - GUTTATE PSORIASIS [None]
  - ABASIA [None]
  - RENAL FAILURE [None]
  - FUNGAL INFECTION [None]
  - WEIGHT INCREASED [None]
  - PULMONARY MASS [None]
  - ERYTHRODERMIC PSORIASIS [None]
  - PSORIASIS [None]
  - INFECTION [None]
